FAERS Safety Report 4274024-1 (Version None)
Quarter: 2004Q1

REPORT INFORMATION
  Report Type: 
  Country: None (occurrence: None)
  Receive Date: 20040115
  Receipt Date: 20040105
  Transmission Date: 20041129
  Serious: Yes (Hospitalization)
  Sender: FDA-Public Use
  Company Number: 2004193472FR

PATIENT
  Age: 3 Decade
  Sex: Male
  Weight: 2.3 kg

DRUGS (4)
  1. XANAX [Suspect]
     Dosage: 2 G/DAY
  2. PROZAC [Suspect]
  3. STILNOX (ZOLPIDEM) [Concomitant]
  4. DEPAKENE [Concomitant]

REACTIONS (13)
  - AGITATION NEONATAL [None]
  - ANXIETY [None]
  - CAESAREAN SECTION [None]
  - CARBOHYDRATE METABOLISM DISORDER [None]
  - FACIAL DYSMORPHISM [None]
  - FEEDING PROBLEM IN NEWBORN [None]
  - FOETAL CARDIAC DISORDER [None]
  - IRRITABILITY [None]
  - MATERNAL DRUGS AFFECTING FOETUS [None]
  - NEONATAL DISORDER [None]
  - PREMATURE BABY [None]
  - SLEEP DISORDER [None]
  - TREMOR NEONATAL [None]
